APPROVED DRUG PRODUCT: ALBUTEROL SULFATE
Active Ingredient: ALBUTEROL SULFATE
Strength: EQ 0.021% BASE
Dosage Form/Route: SOLUTION;INHALATION
Application: A214531 | Product #001 | TE Code: AN
Applicant: THE RITEDOSE CORP
Approved: Dec 28, 2021 | RLD: No | RS: Yes | Type: RX